FAERS Safety Report 7642594-9 (Version None)
Quarter: 2011Q3

REPORT INFORMATION
  Report Type: 
  Country: None (occurrence: None)
  Receive Date: 20110728
  Receipt Date: 20110722
  Transmission Date: 20111222
  Serious: Yes (Other)
  Sender: FDA-Public Use
  Company Number: GB-PFIZER INC-GB-WYE-G04622009

PATIENT
  Age: 41 Year
  Sex: Male
  Weight: 123 kg

DRUGS (11)
  1. TRAZODONE HCL [Suspect]
     Indication: BIPOLAR DISORDER
     Dosage: 150 MG, MORNING DOSE, 225 MG NOCTURNAL DOSE
     Route: 048
     Dates: start: 20080530, end: 20090101
  2. VARENICLINE TARTRATE [Interacting]
     Dosage: 1.0 MG, 2X/DAY
     Route: 048
     Dates: start: 20090512, end: 20090819
  3. QUETIAPINE [Interacting]
     Indication: BIPOLAR DISORDER
     Dosage: 600 MG, NOCTURNAL DOSE
     Route: 048
     Dates: start: 20081216
  4. TRAZODONE HCL [Interacting]
     Dosage: UNKNOWN
     Route: 048
     Dates: start: 20090101
  5. TRAZODONE HCL [Interacting]
     Dosage: UNK
     Route: 065
     Dates: start: 20090101
  6. LITHIUM [Interacting]
     Indication: BIPOLAR DISORDER
     Dosage: 1000 MG, NOCTURNAL
     Route: 065
     Dates: start: 20081208
  7. LITHIUM [Interacting]
     Dosage: 200 MG, 4X/DAY
     Route: 048
     Dates: start: 20031107
  8. QUETIAPINE [Interacting]
     Dosage: UNK
     Route: 065
     Dates: start: 20090101
  9. QUETIAPINE [Interacting]
     Dosage: 300 MG, NOCTURNAL DOSE
     Route: 065
     Dates: start: 20090916
  10. VARENICLINE TARTRATE [Interacting]
     Dosage: UNK
     Route: 065
     Dates: start: 20080516
  11. LITHIUM [Interacting]
     Indication: MOOD ALTERED
     Dosage: 800 MG, NOCTURNAL DOSE
     Route: 065
     Dates: start: 20090916

REACTIONS (6)
  - ANXIETY [None]
  - DEPRESSION [None]
  - CONDITION AGGRAVATED [None]
  - DRUG INEFFECTIVE [None]
  - BIPOLAR DISORDER [None]
  - DRUG INTERACTION [None]
